FAERS Safety Report 7538036-4 (Version None)
Quarter: 2011Q2

REPORT INFORMATION
  Report Type: 
  Country: None (occurrence: None)
  Receive Date: 20110609
  Receipt Date: 20110603
  Transmission Date: 20111010
  Serious: Yes (Death, Hospitalization)
  Sender: FDA-Public Use
  Company Number: US-CELGENEUS-163-21880-11060796

PATIENT
  Age: 66 Year
  Sex: Female

DRUGS (10)
  1. METOPROLOL SUCCINATE [Concomitant]
     Route: 065
  2. HYDROCODONE BITARTRATE AND ACETAMINOPHEN [Concomitant]
     Route: 065
  3. METOLAZONE [Concomitant]
     Route: 065
  4. DEXAMETHASONE [Concomitant]
     Route: 065
  5. CLONIDINE [Concomitant]
     Route: 065
  6. LOSARTAN POTASSIUM [Concomitant]
     Route: 065
  7. BUMETANIDE [Concomitant]
     Route: 065
  8. MEGESTROL ACETATE [Concomitant]
     Route: 065
  9. ALENDRONATE SODIUM [Concomitant]
     Route: 065
  10. REVLIMID [Suspect]
     Indication: MULTIPLE MYELOMA
     Dosage: 5 MILLIGRAM
     Route: 048
     Dates: start: 20110401

REACTIONS (2)
  - LUNG NEOPLASM MALIGNANT [None]
  - DEATH [None]
